FAERS Safety Report 20172297 (Version 1)
Quarter: 2021Q4

REPORT INFORMATION
  Report Type: Spontaneous
  Country: GB (occurrence: GB)
  Receive Date: 20211210
  Receipt Date: 20211210
  Transmission Date: 20220303
  Serious: Yes (Disabling)
  Sender: FDA-Public Use
  Company Number: GB-GLAXOSMITHKLINE-GB2020048004

PATIENT
  Age: 68 Year
  Sex: Male

DRUGS (5)
  1. DUTASTERIDE [Suspect]
     Active Substance: DUTASTERIDE
     Indication: Prostatomegaly
     Route: 048
     Dates: start: 20180726
  2. FINASTERIDE [Concomitant]
     Active Substance: FINASTERIDE
     Dates: start: 20121012
  3. TAMSULOSIN [Concomitant]
     Active Substance: TAMSULOSIN
     Route: 065
     Dates: start: 20121012
  4. LANSOPRAZOLE [Concomitant]
     Active Substance: LANSOPRAZOLE
     Dosage: 30MG IN MORNING
  5. CALCIUM CARBONATE [Concomitant]
     Active Substance: CALCIUM CARBONATE
     Dosage: MORNING AND EVENING

REACTIONS (12)
  - Depression [Not Recovered/Not Resolved]
  - Gender dysphoria [Unknown]
  - Pain in extremity [Unknown]
  - Muscle tightness [Unknown]
  - Stress [Not Recovered/Not Resolved]
  - Abnormal weight gain [Not Recovered/Not Resolved]
  - Fatigue [Not Recovered/Not Resolved]
  - Myalgia [Not Recovered/Not Resolved]
  - Muscular weakness [Not Recovered/Not Resolved]
  - Fatigue [Not Recovered/Not Resolved]
  - Pruritus [Unknown]
  - Abdominal distension [Unknown]
